FAERS Safety Report 6460470-4 (Version None)
Quarter: 2009Q4

REPORT INFORMATION
  Report Type: 
  Country: None (occurrence: None)
  Receive Date: 20091130
  Receipt Date: 20091124
  Transmission Date: 20100525
  Serious: Yes (Hospitalization)
  Sender: FDA-Public Use
  Company Number: FR-ROCHE-670941

PATIENT
  Age: 80 Year
  Sex: Male

DRUGS (3)
  1. CAPECITABINE [Suspect]
     Indication: GASTRIC CANCER
     Dosage: DOSE: CYCLIC
     Route: 048
     Dates: start: 20070104, end: 20070109
  2. EPIRUBICIN HCL [Suspect]
     Indication: GASTRIC CANCER
     Dosage: DOSE: CYCLIC
     Route: 042
     Dates: start: 20070104, end: 20070104
  3. CISPLATIN [Suspect]
     Indication: GASTRIC CANCER
     Dosage: DOSE: CYCLIC
     Route: 042
     Dates: start: 20070104, end: 20070104

REACTIONS (1)
  - GENERAL PHYSICAL HEALTH DETERIORATION [None]
